FAERS Safety Report 23348194 (Version 1)
Quarter: 2023Q4

REPORT INFORMATION
  Report Type: Spontaneous
  Country: JP (occurrence: JP)
  Receive Date: 20231228
  Receipt Date: 20231228
  Transmission Date: 20240109
  Serious: Yes (Hospitalization)
  Sender: FDA-Public Use
  Company Number: JP-Eisai-202311713_LEN-RCC_P_1

PATIENT
  Age: 7 Decade

DRUGS (2)
  1. LENVIMA [Suspect]
     Active Substance: LENVATINIB
     Indication: Renal cell carcinoma
     Dosage: TWO CYCLES
     Route: 048
     Dates: start: 202311, end: 202312
  2. KEYTRUDA [Concomitant]
     Active Substance: PEMBROLIZUMAB
     Indication: Renal cell carcinoma
     Dosage: TWO CYCLES
     Route: 041
     Dates: start: 202311, end: 202312

REACTIONS (3)
  - Infectious pleural effusion [Not Recovered/Not Resolved]
  - Malaise [Not Recovered/Not Resolved]
  - Thirst [Not Recovered/Not Resolved]

NARRATIVE: CASE EVENT DATE: 20231201
